FAERS Safety Report 6723349-6 (Version None)
Quarter: 2010Q2

REPORT INFORMATION
  Report Type: 
  Country: None (occurrence: None)
  Receive Date: 20100511
  Receipt Date: 20100329
  Transmission Date: 20101027
  Serious: Yes (Other)
  Sender: FDA-Public Use
  Company Number: CA-1181126

PATIENT
  Age: 77 Year
  Sex: Male

DRUGS (6)
  1. NEVANAC [Suspect]
     Indication: PREOPERATIVE CARE
     Dosage: QID, QID, OPHTHALMIC, OPHTHALMIC
     Route: 047
     Dates: start: 20091214, end: 20091230
  2. NEVANAC [Suspect]
     Indication: PREOPERATIVE CARE
     Dosage: QID, QID, OPHTHALMIC, OPHTHALMIC
     Route: 047
     Dates: start: 20091207, end: 20100104
  3. VIGAMOX [Suspect]
     Indication: POSTOPERATIVE CARE
     Dosage: QID, QID, OPHTHALMIC, OPHTHALMIC
     Route: 047
     Dates: start: 20091207, end: 20091223
  4. VIGAMOX [Suspect]
     Indication: POSTOPERATIVE CARE
     Dosage: QID, QID, OPHTHALMIC, OPHTHALMIC
     Route: 047
     Dates: start: 20091214, end: 20091230
  5. PRED FORTE [Concomitant]
  6. COMBIGAN (COMBIGAN) [Concomitant]

REACTIONS (4)
  - CORNEAL INFILTRATES [None]
  - DRUG TOXICITY [None]
  - SENSATION OF FOREIGN BODY [None]
  - VISION BLURRED [None]
